FAERS Safety Report 11669280 (Version 1)
Quarter: 2015Q4

REPORT INFORMATION
  Report Type: Spontaneous
  Country: US (occurrence: US)
  Receive Date: 20151027
  Receipt Date: 20151027
  Transmission Date: 20160304
  Serious: Yes (Hospitalization)
  Sender: FDA-Public Use
  Company Number: US-TEVA-603488USA

PATIENT
  Age: 21 Year
  Sex: Female

DRUGS (1)
  1. METHYLPREDNISOLONE. [Suspect]
     Active Substance: METHYLPREDNISOLONE
     Dosage: HIGH DOSE
     Route: 042

REACTIONS (2)
  - Liver disorder [Recovered/Resolved]
  - Metabolic disorder [Recovered/Resolved]
